FAERS Safety Report 16925314 (Version 2)
Quarter: 2020Q1

REPORT INFORMATION
  Report Type: Spontaneous
  Country: US (occurrence: US)
  Receive Date: 20191016
  Receipt Date: 20200206
  Transmission Date: 20200409
  Serious: No
  Sender: FDA-Public Use
  Company Number: US-GLAXOSMITHKLINE-US2019182662

PATIENT
  Age: 41 Year
  Sex: Male

DRUGS (2)
  1. ABREVA [Suspect]
     Active Substance: DOCOSANOL
     Indication: ORAL HERPES
     Dosage: UNK(5 TIMES A DAY)
     Route: 062
     Dates: start: 20191002, end: 20191004
  2. ABREVA [Suspect]
     Active Substance: DOCOSANOL
     Dosage: UNK (5 TIMES A DAY)
     Route: 062
     Dates: start: 20191002, end: 20191004

REACTIONS (3)
  - Incorrect product administration duration [Unknown]
  - Wrong technique in product usage process [Unknown]
  - Product complaint [Unknown]

NARRATIVE: CASE EVENT DATE: 20191004
